FAERS Safety Report 16313733 (Version 1)
Quarter: 2019Q2

REPORT INFORMATION
  Report Type: Spontaneous
  Country: US (occurrence: US)
  Receive Date: 20190515
  Receipt Date: 20190515
  Transmission Date: 20190711
  Serious: No
  Sender: FDA-Public Use
  Company Number: US-PFIZER INC-2019203111

PATIENT
  Age: 71 Year
  Sex: Female
  Weight: 99.79 kg

DRUGS (4)
  1. LYRICA [Suspect]
     Active Substance: PREGABALIN
     Dosage: 100 MG, 2X/DAY
  2. LYRICA [Suspect]
     Active Substance: PREGABALIN
     Dosage: 300 MG, UNK (ONE IN THE MORNING AND TWO AT NIGHT)
  3. LYRICA [Suspect]
     Active Substance: PREGABALIN
     Dosage: 300 MG, UNK (2 IN THE MORNING AND 1 AT NIGHT)
  4. LYRICA [Suspect]
     Active Substance: PREGABALIN
     Indication: FIBROMYALGIA
     Dosage: 150 MG, 2X/DAY [150 MG BY MOUTH TWICE A DAY]
     Route: 048

REACTIONS (4)
  - Somnolence [Recovered/Resolved]
  - Arthritis [Unknown]
  - Intentional product use issue [Unknown]
  - Off label use [Unknown]
